FAERS Safety Report 8796874 (Version 2)
Quarter: 2012Q4

REPORT INFORMATION
  Report Type: 
  Country: US (occurrence: US)
  Receive Date: 20120919
  Receipt Date: 20120926
  Transmission Date: 20130627
  Serious: Yes (Other)
  Sender: FDA-Public Use
  Company Number: US-009507513-1209USA006218

PATIENT
  Sex: Female

DRUGS (1)
  1. MIRALAX [Suspect]
     Indication: BOWEL PREPARATION
     Dosage: UNK
     Route: 048
     Dates: start: 20120820

REACTIONS (13)
  - Blindness transient [Recovering/Resolving]
  - Eye burns [Recovering/Resolving]
  - Arthralgia [Unknown]
  - Peripheral coldness [Unknown]
  - Feeling hot [Unknown]
  - Abdominal pain upper [Unknown]
  - Anorectal discomfort [Unknown]
  - Eye pruritus [Recovering/Resolving]
  - Lacrimation increased [Unknown]
  - Eye allergy [Unknown]
  - Gastrointestinal motility disorder [Unknown]
  - Prescribed overdose [Unknown]
  - Off label use [Unknown]
